FAERS Safety Report 6714946-2 (Version None)
Quarter: 2010Q2

REPORT INFORMATION
  Report Type: 
  Country: None (occurrence: None)
  Receive Date: 20100507
  Receipt Date: 20100423
  Transmission Date: 20101027
  Serious: No
  Sender: FDA-Public Use
  Company Number: US-BAYER-201020570NA

PATIENT
  Sex: Female

DRUGS (1)
  1. YAZ [Suspect]
     Indication: DRUG USE FOR UNKNOWN INDICATION
     Route: 048
     Dates: start: 20080601, end: 20080801

REACTIONS (5)
  - EYE PAIN [None]
  - HEADACHE [None]
  - HYPOAESTHESIA FACIAL [None]
  - MUSCLE TWITCHING [None]
  - PAIN IN EXTREMITY [None]
